FAERS Safety Report 8608474-7 (Version None)
Quarter: 2012Q3

REPORT INFORMATION
  Report Type: 
  Country: None (occurrence: None)
  Receive Date: 20120821
  Receipt Date: 20120815
  Transmission Date: 20120928
  Serious: Yes (Other)
  Sender: FDA-Public Use
  Company Number: US-ROCHE-788912

PATIENT
  Sex: Male
  Weight: 74.91 kg

DRUGS (2)
  1. ACCUTANE [Suspect]
     Route: 048
     Dates: start: 19841204, end: 19850213
  2. ACCUTANE [Suspect]
     Indication: ACNE
     Route: 048

REACTIONS (8)
  - DRY SKIN [None]
  - ILEAL PERFORATION [None]
  - LIP DRY [None]
  - EMOTIONAL DISTRESS [None]
  - RECTAL FISSURE [None]
  - CROHN'S DISEASE [None]
  - INFLAMMATORY BOWEL DISEASE [None]
  - EPISTAXIS [None]
